FAERS Safety Report 4276622-8 (Version None)
Quarter: 2004Q1

REPORT INFORMATION
  Report Type: 
  Country: None (occurrence: None)
  Receive Date: 20040120
  Receipt Date: 20040105
  Transmission Date: 20041129
  Serious: Yes (Life-Threatening, Other)
  Sender: FDA-Public Use
  Company Number: 03-355-0092-1

PATIENT
  Age: 62 Year
  Sex: Male

DRUGS (1)
  1. DOXORUBICIN HCL [Suspect]
     Indication: HEPATIC NEOPLASM MALIGNANT
     Dosage: 250 MG M2 IV WKLY
     Dates: start: 20031124, end: 20031124

REACTIONS (4)
  - FEBRILE NEUTROPENIA [None]
  - MEDICATION ERROR [None]
  - OEDEMA PERIPHERAL [None]
  - THROMBOCYTOPENIA [None]
